FAERS Safety Report 23315855 (Version 2)
Quarter: 2024Q1

REPORT INFORMATION
  Report Type: Report from Study
  Country: CN (occurrence: CN)
  Receive Date: 20231219
  Receipt Date: 20240118
  Transmission Date: 20240409
  Serious: No
  Sender: FDA-Public Use
  Company Number: CN-PFIZER INC-PV202300203046

PATIENT
  Age: 102 Year
  Sex: Female
  Weight: 50 kg

DRUGS (90)
  1. NIRMATRELVIR\RITONAVIR [Suspect]
     Active Substance: NIRMATRELVIR\RITONAVIR
     Indication: COVID-19
     Dosage: [NIRMATRELVIR 300MG]/[RITONAVIR 100MG], 2X/DAY (BID), ROUTE: PC
     Dates: start: 20220422, end: 20220502
  2. ASPIRIN [Concomitant]
     Active Substance: ASPIRIN
     Indication: Antiplatelet therapy
     Dosage: ENTERIC COATED TABLETS
     Route: 048
     Dates: start: 20220412, end: 20220423
  3. OLMESARTAN MEDOXOMIL AND AMLODIPINE BESYLATE [Concomitant]
     Indication: Hypotension
     Dosage: UNK
     Route: 048
     Dates: start: 20220412, end: 20220423
  4. NIFEDIPINE [Concomitant]
     Active Substance: NIFEDIPINE
     Indication: Blood pressure management
     Dosage: CONTROLLED RELEASE TABLET
     Route: 048
     Dates: start: 20220412, end: 20220423
  5. NIFEDIPINE [Concomitant]
     Active Substance: NIFEDIPINE
     Dosage: UNK
     Route: 048
     Dates: start: 20220430, end: 20220430
  6. ISOSORBIDE MONONITRATE [Concomitant]
     Active Substance: ISOSORBIDE MONONITRATE
     Indication: Coronary artery dilatation
     Dosage: SUSTAINED RELEASE CAPSULES
     Route: 048
     Dates: start: 20220412, end: 20220423
  7. FUROSEMIDE [Concomitant]
     Active Substance: FUROSEMIDE
     Indication: Polyuria
     Dosage: UNK
     Route: 048
     Dates: start: 20220412, end: 20220413
  8. FUROSEMIDE [Concomitant]
     Active Substance: FUROSEMIDE
     Dosage: UNK
     Route: 048
     Dates: start: 20220413, end: 20220423
  9. FUROSEMIDE [Concomitant]
     Active Substance: FUROSEMIDE
     Dosage: UNK
     Route: 048
     Dates: start: 20220424, end: 20220430
  10. FUROSEMIDE [Concomitant]
     Active Substance: FUROSEMIDE
     Dosage: UNK
     Route: 048
     Dates: start: 20220424, end: 20220424
  11. LANSOPRAZOLE [Concomitant]
     Active Substance: LANSOPRAZOLE
     Indication: Prophylaxis
     Dosage: UNK
     Route: 048
     Dates: start: 20220412, end: 20220413
  12. CALCITRIOL [Concomitant]
     Active Substance: CALCITRIOL
     Indication: Mineral supplementation
     Dosage: SOFTGEL CAPSULE
     Route: 048
     Dates: start: 20220412, end: 20220413
  13. BENZBROMARONE [Concomitant]
     Active Substance: BENZBROMARONE
     Indication: Blood uric acid increased
     Dosage: UNK
     Route: 048
     Dates: start: 20220412, end: 20220413
  14. ALPRAZOLAM [Concomitant]
     Active Substance: ALPRAZOLAM
     Indication: Sleep disorder therapy
     Dosage: UNK
     Route: 048
     Dates: start: 20220412, end: 20220423
  15. HERBALS\MENTHOL [Concomitant]
     Active Substance: HERBALS\MENTHOL
     Indication: Antiviral treatment
     Dosage: UNK
     Route: 048
     Dates: start: 20220413, end: 20220423
  16. HERBALS\MENTHOL [Concomitant]
     Active Substance: HERBALS\MENTHOL
     Indication: COVID-19 treatment
     Dosage: UNK
     Route: 048
     Dates: start: 20220424, end: 20220502
  17. HERBALS\MENTHOL [Concomitant]
     Active Substance: HERBALS\MENTHOL
     Dosage: KE LI
     Route: 048
     Dates: start: 20220412, end: 202204
  18. HERBALS\MENTHOL [Concomitant]
     Active Substance: HERBALS\MENTHOL
     Dosage: KE LI
     Route: 048
     Dates: start: 20220429, end: 20220429
  19. RHUBARB/SODIUM BICARBONATE [Concomitant]
     Indication: Constipation prophylaxis
     Dosage: UNK
     Route: 048
     Dates: start: 20220413, end: 20220423
  20. ENTERAL NUTRITIONAL SUSPENSION (SP) [Concomitant]
     Indication: Nutritional supplementation
     Dosage: UNK
     Dates: start: 20220415, end: 20220418
  21. ENTERAL NUTRITIONAL SUSPENSION (SP) [Concomitant]
     Dosage: UNK
     Route: 045
     Dates: start: 20220429, end: 20220502
  22. HEPARIN SODIUM [Concomitant]
     Active Substance: HEPARIN SODIUM
     Indication: Anticoagulant therapy
     Dosage: UNK
     Route: 058
     Dates: start: 20220422, end: 20220423
  23. HEPARIN SODIUM [Concomitant]
     Active Substance: HEPARIN SODIUM
     Dosage: UNK
     Route: 058
     Dates: start: 20220423, end: 20220502
  24. INSULIN HUMAN [Concomitant]
     Active Substance: INSULIN HUMAN
     Indication: Fluid replacement
     Dosage: UNK
     Route: 042
     Dates: start: 20220423, end: 20220424
  25. INSULIN HUMAN [Concomitant]
     Active Substance: INSULIN HUMAN
     Dosage: UNK
     Route: 042
     Dates: start: 20220424, end: 20220427
  26. INSULIN HUMAN [Concomitant]
     Active Substance: INSULIN HUMAN
     Dosage: UNK
     Route: 042
     Dates: start: 20220427, end: 20220427
  27. INSULIN HUMAN [Concomitant]
     Active Substance: INSULIN HUMAN
     Dosage: UNK
     Route: 042
     Dates: start: 20220501, end: 20220501
  28. VITAMIN C [Concomitant]
     Active Substance: ASCORBIC ACID
     Indication: Fluid replacement
     Dosage: UNK
     Route: 042
     Dates: start: 20220423, end: 20220424
  29. VITAMIN C [Concomitant]
     Active Substance: ASCORBIC ACID
     Indication: Infusion
     Dosage: UNK
     Route: 042
     Dates: start: 20220427, end: 20220427
  30. VITAMIN C [Concomitant]
     Active Substance: ASCORBIC ACID
     Dosage: UNK
     Route: 042
     Dates: start: 20220501, end: 20220501
  31. POTASSIUM CHLORIDE [Concomitant]
     Active Substance: POTASSIUM CHLORIDE
     Indication: Fluid replacement
     Dosage: UNK
     Route: 042
     Dates: start: 20220423, end: 20220427
  32. POTASSIUM CHLORIDE [Concomitant]
     Active Substance: POTASSIUM CHLORIDE
     Indication: Mineral supplementation
     Dosage: UNK
     Route: 042
     Dates: start: 20220501, end: 20220501
  33. VITAMIN B6 [Concomitant]
     Active Substance: PYRIDOXINE HYDROCHLORIDE
     Indication: Fluid replacement
     Dosage: UNK
     Route: 042
     Dates: start: 20220423, end: 20220427
  34. VITAMIN B6 [Concomitant]
     Active Substance: PYRIDOXINE HYDROCHLORIDE
     Indication: Infusion
     Dosage: UNK
     Route: 042
     Dates: start: 20220427, end: 20220427
  35. VITAMIN B6 [Concomitant]
     Active Substance: PYRIDOXINE HYDROCHLORIDE
     Dosage: UNK
     Route: 042
     Dates: start: 20220501, end: 20220501
  36. DEXTROSE\SODIUM CHLORIDE [Concomitant]
     Active Substance: DEXTROSE\SODIUM CHLORIDE
     Indication: Fluid replacement
     Dosage: UNK
     Route: 042
     Dates: start: 20220423, end: 20220427
  37. DEXTROSE\SODIUM CHLORIDE [Concomitant]
     Active Substance: DEXTROSE\SODIUM CHLORIDE
     Indication: Infusion
     Dosage: UNK
     Route: 042
     Dates: start: 20220427, end: 20220427
  38. DEXTROSE\SODIUM CHLORIDE [Concomitant]
     Active Substance: DEXTROSE\SODIUM CHLORIDE
     Dosage: UNK
     Route: 045
     Dates: start: 20220501, end: 20220501
  39. DEXTROSE [Concomitant]
     Active Substance: DEXTROSE\DEXTROSE MONOHYDRATE
     Indication: Fluid replacement
     Dosage: UNK
     Route: 042
     Dates: start: 20220423, end: 20220427
  40. DEXTROSE [Concomitant]
     Active Substance: DEXTROSE\DEXTROSE MONOHYDRATE
     Dosage: UNK
     Route: 042
     Dates: start: 20220501, end: 20220501
  41. OMEPRAZOLE SODIUM [Concomitant]
     Active Substance: OMEPRAZOLE SODIUM
     Indication: Prophylaxis
     Dosage: UNK
     Route: 042
     Dates: start: 20220423, end: 20220423
  42. OMEPRAZOLE SODIUM [Concomitant]
     Active Substance: OMEPRAZOLE SODIUM
     Dosage: UNK
     Route: 042
     Dates: start: 20220424, end: 20220428
  43. AMBROXOL HYDROCHLORIDE [Concomitant]
     Active Substance: AMBROXOL HYDROCHLORIDE
     Indication: Asthma
     Dosage: UNK
     Route: 042
     Dates: start: 20220423, end: 20220424
  44. AMBROXOL HYDROCHLORIDE [Concomitant]
     Active Substance: AMBROXOL HYDROCHLORIDE
     Indication: Productive cough
     Dosage: UNK
     Route: 042
     Dates: start: 20220424, end: 20220502
  45. CEFTRIAXONE SODIUM [Concomitant]
     Active Substance: CEFTRIAXONE SODIUM
     Indication: Antiinflammatory therapy
     Dosage: UNK
     Route: 042
     Dates: start: 20220424, end: 20220502
  46. CEFTRIAXONE SODIUM [Concomitant]
     Active Substance: CEFTRIAXONE SODIUM
     Indication: Anti-infective therapy
     Dosage: UNK
     Route: 042
     Dates: start: 20220424, end: 20220424
  47. MOXIFLOXACIN HYDROCHLORIDE [Concomitant]
     Active Substance: MOXIFLOXACIN HYDROCHLORIDE\MOXIFLOXACIN HYDROCHLORIDE MONOHYDRATE
     Indication: Antiinflammatory therapy
     Dosage: UNK
     Route: 042
     Dates: start: 20220424, end: 20220429
  48. MOXIFLOXACIN HYDROCHLORIDE [Concomitant]
     Active Substance: MOXIFLOXACIN HYDROCHLORIDE\MOXIFLOXACIN HYDROCHLORIDE MONOHYDRATE
     Indication: Anti-infective therapy
     Dosage: UNK
     Route: 042
     Dates: start: 20220424, end: 20220424
  49. SPIRONOLACTONE [Concomitant]
     Active Substance: SPIRONOLACTONE
     Indication: Polyuria
     Dosage: UNK
     Route: 048
     Dates: start: 20220424, end: 20220502
  50. SPIRONOLACTONE [Concomitant]
     Active Substance: SPIRONOLACTONE
     Dosage: UNK
     Route: 048
     Dates: start: 20220424, end: 20220424
  51. ALBUMIN HUMAN [Concomitant]
     Active Substance: ALBUMIN HUMAN
     Indication: Supportive care
     Dosage: UNK
     Route: 042
     Dates: start: 20220424, end: 20220428
  52. ALBUMIN HUMAN [Concomitant]
     Active Substance: ALBUMIN HUMAN
     Dosage: UNK
     Route: 042
     Dates: start: 20220424, end: 20220424
  53. ALBUTEROL [Concomitant]
     Active Substance: ALBUTEROL
     Indication: Asthma
     Dosage: SUSTAINED RELEASE CAPSULE
     Route: 048
     Dates: start: 20220424, end: 20220425
  54. ALBUTEROL [Concomitant]
     Active Substance: ALBUTEROL
     Dosage: UNK
     Route: 048
     Dates: start: 20220424, end: 20220424
  55. VALSARTAN [Concomitant]
     Active Substance: VALSARTAN
     Indication: Blood pressure measurement
     Dosage: UNK
     Route: 048
     Dates: start: 20220428, end: 20220502
  56. VALSARTAN [Concomitant]
     Active Substance: VALSARTAN
     Dosage: UNK
     Route: 048
     Dates: start: 20220428, end: 20220428
  57. OMEPRAZOLE [Concomitant]
     Active Substance: OMEPRAZOLE
     Indication: Prophylaxis
     Dosage: ENTERIC COATED CAPSULE
     Route: 048
     Dates: start: 20220428, end: 20220502
  58. TIGECYCLINE [Concomitant]
     Active Substance: TIGECYCLINE
     Indication: Antiinflammatory therapy
     Dosage: UNK
     Route: 042
     Dates: start: 20220430, end: 20220502
  59. TIGECYCLINE [Concomitant]
     Active Substance: TIGECYCLINE
     Indication: Anti-infective therapy
     Dosage: UNK
     Route: 042
     Dates: start: 20220430, end: 20220430
  60. SULFAMETHOXAZOLE [Concomitant]
     Active Substance: SULFAMETHOXAZOLE
     Indication: Anti-infective therapy
     Dosage: UNK
     Route: 045
     Dates: start: 20220430, end: 20220502
  61. SULFAMETHOXAZOLE [Concomitant]
     Active Substance: SULFAMETHOXAZOLE
     Dosage: UNK
     Route: 045
     Dates: start: 20220430, end: 20220430
  62. FUROSEMIDE [Concomitant]
     Active Substance: FUROSEMIDE
     Indication: Polyuria
     Dosage: UNK
     Route: 042
     Dates: start: 20220430, end: 20220501
  63. FUROSEMIDE [Concomitant]
     Active Substance: FUROSEMIDE
     Dosage: UNK
     Route: 042
     Dates: start: 20220501, end: 20220502
  64. FUROSEMIDE [Concomitant]
     Active Substance: FUROSEMIDE
     Dosage: UNK
     Route: 042
     Dates: start: 20220430, end: 20220430
  65. FUROSEMIDE [Concomitant]
     Active Substance: FUROSEMIDE
     Dosage: UNK
     Route: 042
     Dates: start: 20220501, end: 20220501
  66. HERBALS [Concomitant]
     Active Substance: HERBALS
     Indication: COVID-19 treatment
     Dosage: KOU FU YE
     Route: 048
     Dates: start: 20220412, end: 202204
  67. YI FEI ZHI KE [Concomitant]
     Indication: Cough
     Dosage: HE JI
     Route: 048
     Dates: start: 20220422, end: 202204
  68. ISOPROTERENOL HYDROCHLORIDE [Concomitant]
     Active Substance: ISOPROTERENOL HYDROCHLORIDE
     Dosage: UNK
     Route: 042
     Dates: start: 20220425, end: 20220425
  69. ISOPROTERENOL HYDROCHLORIDE [Concomitant]
     Active Substance: ISOPROTERENOL HYDROCHLORIDE
     Dosage: UNK
     Route: 042
     Dates: start: 20220426, end: 20220426
  70. ISOPROTERENOL HYDROCHLORIDE [Concomitant]
     Active Substance: ISOPROTERENOL HYDROCHLORIDE
     Dosage: UNK
     Route: 042
     Dates: start: 20220427, end: 20220427
  71. ISOPROTERENOL HYDROCHLORIDE [Concomitant]
     Active Substance: ISOPROTERENOL HYDROCHLORIDE
     Dosage: UNK
     Route: 042
     Dates: start: 20220428, end: 20220428
  72. ISOPROTERENOL HYDROCHLORIDE [Concomitant]
     Active Substance: ISOPROTERENOL HYDROCHLORIDE
     Dosage: UNK
     Route: 042
     Dates: start: 20220429, end: 20220429
  73. ISOPROTERENOL HYDROCHLORIDE [Concomitant]
     Active Substance: ISOPROTERENOL HYDROCHLORIDE
     Dosage: UNK
     Route: 042
     Dates: start: 20220430, end: 20220430
  74. ISOPROTERENOL HYDROCHLORIDE [Concomitant]
     Active Substance: ISOPROTERENOL HYDROCHLORIDE
     Dosage: UNK
     Route: 042
     Dates: start: 20220501, end: 20220501
  75. SODIUM POLYSTYRENE SULFONATE [Concomitant]
     Active Substance: SODIUM POLYSTYRENE SULFONATE
     Indication: Mineral supplementation
     Dosage: POWDER
     Route: 048
     Dates: start: 20220427, end: 20220427
  76. SODIUM POLYSTYRENE SULFONATE [Concomitant]
     Active Substance: SODIUM POLYSTYRENE SULFONATE
     Dosage: POWDER
     Route: 045
     Dates: start: 20220501, end: 20220501
  77. CHLORHEXIDINE [Concomitant]
     Active Substance: CHLORHEXIDINE\CHLORHEXIDINE GLUCONATE
     Indication: Therapeutic gargle
     Dosage: GARGLE COMPOUND, OTHER
     Dates: start: 20220427, end: 20220427
  78. MONTMORILLONITE [Concomitant]
     Active Substance: MONTMORILLONITE
     Indication: Antidiarrhoeal supportive care
     Dosage: POWDER
     Route: 048
     Dates: start: 20220427, end: 20220427
  79. MONTMORILLONITE [Concomitant]
     Active Substance: MONTMORILLONITE
     Dosage: POWDER
     Route: 048
     Dates: start: 20220430, end: 20220430
  80. CALCIUM CHLORIDE\POTASSIUM CHLORIDE\SODIUM CHLORIDE\SODIUM LACTATE [Concomitant]
     Active Substance: CALCIUM CHLORIDE\POTASSIUM CHLORIDE\SODIUM CHLORIDE\SODIUM LACTATE
     Indication: Infusion
     Dosage: UNK
     Route: 042
     Dates: start: 20220427, end: 20220427
  81. URAPIDIL [Concomitant]
     Active Substance: URAPIDIL
     Indication: Hypotension
     Dosage: UNK
     Route: 042
     Dates: start: 20220428, end: 20220428
  82. NIFEDIPINE [Concomitant]
     Active Substance: NIFEDIPINE
     Indication: Hypotension
     Dosage: UNK
     Route: 060
     Dates: start: 20220430, end: 20220430
  83. MICONAZOLE NITRATE [Concomitant]
     Active Substance: MICONAZOLE NITRATE
     Dosage: POWDER
     Dates: start: 20220430, end: 20220430
  84. NOREPINEPHRINE BITARTRATE [Concomitant]
     Active Substance: NOREPINEPHRINE BITARTRATE
     Dosage: BOOST
     Route: 042
     Dates: start: 20220501, end: 20220501
  85. NOREPINEPHRINE BITARTRATE [Concomitant]
     Active Substance: NOREPINEPHRINE BITARTRATE
     Dosage: BOOST
     Route: 042
     Dates: start: 20220502, end: 20220502
  86. ROCURONIUM BROMIDE [Concomitant]
     Active Substance: ROCURONIUM BROMIDE
     Indication: Muscle relaxant therapy
     Dosage: UNK
     Route: 042
     Dates: start: 20220501, end: 20220501
  87. REMIFENTANIL HYDROCHLORIDE [Concomitant]
     Active Substance: REMIFENTANIL HYDROCHLORIDE
     Indication: Pain
     Dosage: UNK
     Route: 042
     Dates: start: 20220501, end: 20220501
  88. PROPOFOL [Concomitant]
     Active Substance: PROPOFOL
     Indication: Sedation
     Dosage: EMULSION
     Route: 042
     Dates: start: 20220501, end: 20220501
  89. EPINEPHRINE [Concomitant]
     Active Substance: EPINEPHRINE
     Dosage: RESCUE
     Route: 042
     Dates: start: 20220502, end: 20220502
  90. EPINEPHRINE [Concomitant]
     Active Substance: EPINEPHRINE
     Dosage: RESCUE
     Route: 042
     Dates: start: 20220501, end: 20220501

REACTIONS (1)
  - Overdose [Unknown]
